FAERS Safety Report 20760344 (Version 1)
Quarter: 2022Q2

REPORT INFORMATION
  Report Type: Spontaneous
  Country: US (occurrence: US)
  Receive Date: 20220428
  Receipt Date: 20220428
  Transmission Date: 20220721
  Serious: No
  Sender: FDA-Public Use
  Company Number: US-BIOGEN-2022BI01117361

PATIENT
  Sex: Female
  Weight: 76.2 kg

DRUGS (1)
  1. TECFIDERA [Suspect]
     Active Substance: DIMETHYL FUMARATE
     Indication: Product used for unknown indication
     Route: 065

REACTIONS (20)
  - Muscle spasms [Not Recovered/Not Resolved]
  - Sensory disturbance [Unknown]
  - White blood cell count increased [Unknown]
  - Synovial cyst [Unknown]
  - Dry eye [Unknown]
  - Tooth fracture [Unknown]
  - Increased tendency to bruise [Unknown]
  - Limb injury [Unknown]
  - Arthralgia [Unknown]
  - Myalgia [Unknown]
  - Neck pain [Unknown]
  - Nasopharyngitis [Recovered/Resolved]
  - Musculoskeletal disorder [Recovered/Resolved]
  - Peripheral swelling [Recovered/Resolved]
  - Back disorder [Recovered/Resolved]
  - Eye disorder [Recovered/Resolved]
  - Chest discomfort [Recovered/Resolved]
  - Dyspnoea [Recovered/Resolved]
  - Bursitis [Recovered/Resolved]
  - Fall [Recovered/Resolved]
